FAERS Safety Report 5348874-4 (Version None)
Quarter: 2007Q2

REPORT INFORMATION
  Report Type: 
  Country: None (occurrence: None)
  Receive Date: 20070607
  Receipt Date: 20070528
  Transmission Date: 20071010
  Serious: Yes (Hospitalization)
  Sender: FDA-Public Use
  Company Number: PHHO2007CO06707

PATIENT
  Age: 81 Year
  Sex: Female

DRUGS (3)
  1. ZELMAC / HTF 919A [Suspect]
     Indication: IRRITABLE BOWEL SYNDROME
     Dosage: 6 MG, QD
     Route: 048
     Dates: start: 20030101, end: 20070416
  2. EUTIROX [Concomitant]
     Indication: HYPOTHYROIDISM
     Dates: start: 20061001
  3. HYDROCHLOROTHIAZIDE [Concomitant]
     Indication: HYPERTENSION
     Dosage: 25 MG, QD
     Dates: start: 20030101

REACTIONS (3)
  - CHEST PAIN [None]
  - OESOPHAGITIS [None]
  - PERIPHERAL COLDNESS [None]
